FAERS Safety Report 5138205-7 (Version None)
Quarter: 2006Q4

REPORT INFORMATION
  Report Type: 
  Country: None (occurrence: None)
  Receive Date: 20061030
  Receipt Date: 20060725
  Transmission Date: 20070319
  Serious: No
  Sender: FDA-Public Use
  Company Number: US-GLAXOSMITHKLINE-A0613510A

PATIENT
  Sex: Female

DRUGS (6)
  1. ADVAIR HFA [Suspect]
     Indication: ASTHMA
     Dosage: 1PUFF TWICE PER DAY
     Route: 055
  2. PREDNISONE TAB [Concomitant]
  3. NEURONTIN [Concomitant]
  4. OXYCODONE HCL [Concomitant]
  5. NORTRIPTYLINE HCL [Concomitant]
  6. VITAMINS [Concomitant]

REACTIONS (2)
  - CHEST DISCOMFORT [None]
  - MUSCLE SPASMS [None]
